FAERS Safety Report 7946795-1 (Version None)
Quarter: 2011Q4

REPORT INFORMATION
  Report Type: 
  Country: None (occurrence: None)
  Receive Date: 20111123
  Receipt Date: 20111107
  Transmission Date: 20120403
  Serious: Yes (Hospitalization, Other)
  Sender: FDA-Public Use
  Company Number: VAL_00659_2011

PATIENT
  Age: 80 Year
  Sex: Female

DRUGS (2)
  1. CALCITRIOL [Suspect]
     Indication: PRODUCT USED FOR UNKNOWN INDICATION
     Dosage: (DF ORAL)
     Route: 048
     Dates: start: 20040101, end: 20110201
  2. CALCIUM CARBONATE [Suspect]
     Indication: PRODUCT USED FOR UNKNOWN INDICATION
     Dosage: (DF ORAL)
     Route: 048
     Dates: start: 20040101, end: 20110201

REACTIONS (9)
  - CHONDROSARCOMA [None]
  - PULMONARY CALCIFICATION [None]
  - AORTIC VALVE INCOMPETENCE [None]
  - BLOOD PRESSURE DECREASED [None]
  - CALCINOSIS [None]
  - HEART VALVE CALCIFICATION [None]
  - LUNG NEOPLASM [None]
  - MITRAL VALVE INCOMPETENCE [None]
  - MITRAL VALVE CALCIFICATION [None]
